FAERS Safety Report 24601195 (Version 2)
Quarter: 2024Q4

REPORT INFORMATION
  Report Type: Spontaneous
  Country: JP (occurrence: JP)
  Receive Date: 20241110
  Receipt Date: 20241119
  Transmission Date: 20250114
  Serious: Yes (Hospitalization, Other)
  Sender: SANOFI AVENTIS
  Company Number: JP-SAKK-2024SA320462AA

PATIENT
  Age: 63 Year
  Sex: Male

DRUGS (2)
  1. LANTUS SOLOSTAR [Suspect]
     Active Substance: INSULIN GLARGINE
     Indication: Diabetes mellitus
     Dosage: 3 EMPTY INSULIN GLARGINE WERE FOUND, AND ADMINISTRATION OF 900 UNITS WAS SUSPECTED
     Route: 058
  2. LANTUS SOLOSTAR [Suspect]
     Active Substance: INSULIN GLARGINE
     Dosage: 4 UNITS A DAY
     Route: 058

REACTIONS (7)
  - Mental impairment [Not Recovered/Not Resolved]
  - Hypoglycaemia [Recovering/Resolving]
  - Altered state of consciousness [Recovering/Resolving]
  - Hypoglycaemic coma [Recovering/Resolving]
  - Tonic convulsion [Recovering/Resolving]
  - Status epilepticus [Recovering/Resolving]
  - Overdose [Recovering/Resolving]
